FAERS Safety Report 7417850-X (Version None)
Quarter: 2011Q2

REPORT INFORMATION
  Report Type: 
  Country: None (occurrence: None)
  Receive Date: 20110415
  Receipt Date: 20110411
  Transmission Date: 20111010
  Serious: Yes (Hospitalization, Other)
  Sender: FDA-Public Use
  Company Number: JP-PFIZER INC-2011078607

PATIENT
  Age: 73 Year
  Sex: Female

DRUGS (1)
  1. SUTENT [Suspect]
     Indication: RENAL CELL CARCINOMA
     Dosage: 37.5 MG, 1X/DAY
     Route: 048
     Dates: start: 20110309

REACTIONS (2)
  - POSTERIOR REVERSIBLE ENCEPHALOPATHY SYNDROME [None]
  - INTERSTITIAL LUNG DISEASE [None]
